FAERS Safety Report 7392962-8 (Version None)
Quarter: 2011Q2

REPORT INFORMATION
  Report Type: 
  Country: None (occurrence: None)
  Receive Date: 20110404
  Receipt Date: 20110324
  Transmission Date: 20111010
  Serious: Yes (Hospitalization)
  Sender: FDA-Public Use
  Company Number: US-ASTRAZENECA-2011SE15304

PATIENT
  Age: 58 Year
  Sex: Female

DRUGS (10)
  1. LIDOCAINE [Concomitant]
  2. UNSPECIFIED SUSPECT DRUG [Suspect]
  3. VARIOUS VITAMINS [Concomitant]
  4. FUROSEMIDE [Concomitant]
  5. PROZAC [Concomitant]
  6. 20 OTHER MEDICATIONS [Concomitant]
  7. LANTUS [Concomitant]
  8. WATER PILL [Concomitant]
  9. TOPROL-XL [Suspect]
     Route: 048
  10. POTASSIUM [Concomitant]

REACTIONS (14)
  - ARTHRITIS [None]
  - CYST [None]
  - FIBROMYALGIA [None]
  - BACK PAIN [None]
  - DRUG INEFFECTIVE [None]
  - NERVE INJURY [None]
  - MENISCUS LESION [None]
  - PAIN [None]
  - MENTAL DISORDER [None]
  - PLEURITIC PAIN [None]
  - INTERVERTEBRAL DISC PROTRUSION [None]
  - WEIGHT DECREASED [None]
  - DIABETES MELLITUS INADEQUATE CONTROL [None]
  - HYPERPHAGIA [None]
